FAERS Safety Report 19186768 (Version 1)
Quarter: 2021Q2

REPORT INFORMATION
  Report Type: Spontaneous
  Country: US (occurrence: US)
  Receive Date: 20210428
  Receipt Date: 20210428
  Transmission Date: 20210717
  Serious: No
  Sender: FDA-Public Use
  Company Number: US-DSJP-DSU-2021-112048

PATIENT
  Age: 61 Year

DRUGS (1)
  1. TURALIO [Suspect]
     Active Substance: PEXIDARTINIB HYDROCHLORIDE
     Indication: PRODUCT USED FOR UNKNOWN INDICATION
     Dosage: UNK
     Route: 065
     Dates: start: 20210213

REACTIONS (4)
  - Eye swelling [Unknown]
  - Musculoskeletal stiffness [Recovered/Resolved]
  - Hair colour changes [Unknown]
  - Incorrect dose administered [Unknown]
